FAERS Safety Report 23210371 (Version 3)
Quarter: 2023Q4

REPORT INFORMATION
  Report Type: Spontaneous
  Country: US (occurrence: US)
  Receive Date: 20231121
  Receipt Date: 20231206
  Transmission Date: 20240109
  Serious: No
  Sender: FDA-Public Use
  Company Number: US-PFIZER INC-PV202300184999

PATIENT
  Age: 14 Year
  Sex: Male
  Weight: 44.444 kg

DRUGS (2)
  1. GENOTROPIN [Suspect]
     Active Substance: SOMATROPIN
     Indication: Growth hormone deficiency
     Dosage: 1.7 ML
     Dates: start: 20230612
  2. GENOTROPIN [Suspect]
     Active Substance: SOMATROPIN
     Indication: Optic glioma
     Dosage: 1.6 ML
     Dates: start: 20230612

REACTIONS (3)
  - Device malfunction [Unknown]
  - Device mechanical issue [Unknown]
  - Poor quality device used [Unknown]
